FAERS Safety Report 4493801-5 (Version None)
Quarter: 2004Q4

REPORT INFORMATION
  Report Type: 
  Country: None (occurrence: None)
  Receive Date: 20041102
  Receipt Date: 20041025
  Transmission Date: 20050328
  Serious: Yes (Death, Other)
  Sender: FDA-Public Use
  Company Number: USA-2003-0009804

PATIENT
  Age: 19 Year
  Sex: Male
  Weight: 102 kg

DRUGS (3)
  1. OXYCONTIN [Suspect]
     Dosage: 40 MG, NASAL
     Route: 045
  2. CITALOPRAM [Suspect]
  3. ALCOHOL (ETHANOL) [Suspect]

REACTIONS (10)
  - ALCOHOL USE [None]
  - AORTIC VALVE CALCIFICATION [None]
  - AORTIC VALVE SCLEROSIS [None]
  - ASPIRATION [None]
  - CARDIAC VALVE DISEASE [None]
  - DRUG TOXICITY [None]
  - INTENTIONAL MISUSE [None]
  - OVERDOSE [None]
  - PULMONARY OEDEMA [None]
  - SELF-MEDICATION [None]
